FAERS Safety Report 4713372-5 (Version None)
Quarter: 2005Q3

REPORT INFORMATION
  Report Type: 
  Country: None (occurrence: None)
  Receive Date: 20050707
  Receipt Date: 20050614
  Transmission Date: 20060218
  Serious: Yes (Other)
  Sender: FDA-Public Use
  Company Number: 200510306BCA

PATIENT
  Age: 55 Year
  Sex: Male
  Weight: 118 kg

DRUGS (3)
  1. GAMUNEX [Suspect]
     Indication: LYMPHOMA
     Dosage: 47.5 G, TOTAL DAILY, INTRAVENO
     Route: 042
     Dates: start: 20050528
  2. GAMUNEX [Suspect]
  3. RED BLOOD CELLS [Concomitant]

REACTIONS (1)
  - ANTIBODY TEST ABNORMAL [None]
